FAERS Safety Report 7092030-9 (Version None)
Quarter: 2010Q4

REPORT INFORMATION
  Report Type: 
  Country: None (occurrence: None)
  Receive Date: 20101109
  Receipt Date: 20081117
  Transmission Date: 20110411
  Serious: No
  Sender: FDA-Public Use
  Company Number: US-KINGPHARMUSA00001-K200801316

PATIENT
  Age: 38 Year
  Sex: Female

DRUGS (5)
  1. SKELAXIN [Suspect]
     Indication: MUSCLE TIGHTNESS
     Dosage: UNK
     Dates: start: 20080801, end: 20080101
  2. LEXAPRO [Suspect]
     Indication: ANXIETY
     Dosage: 10 MG, SINGLE
     Route: 048
     Dates: start: 20080911, end: 20080911
  3. LEXAPRO [Suspect]
     Dosage: 5 MG, QD
     Route: 048
     Dates: start: 20080913, end: 20080914
  4. ALLEGRA D                          /01367401/ [Suspect]
     Indication: HYPERSENSITIVITY
     Dosage: UNK
  5. CORTICOSTEROID NOS [Suspect]
     Indication: SINUSITIS
     Dosage: UNK
     Route: 045
     Dates: start: 20080101, end: 20080101

REACTIONS (5)
  - HEART RATE INCREASED [None]
  - HYPOAESTHESIA [None]
  - MYDRIASIS [None]
  - PANIC ATTACK [None]
  - PARAESTHESIA [None]
